FAERS Safety Report 6299375-0 (Version None)
Quarter: 2009Q3

REPORT INFORMATION
  Report Type: 
  Country: None (occurrence: None)
  Receive Date: 20090806
  Receipt Date: 20090730
  Transmission Date: 20100115
  Serious: Yes (Hospitalization)
  Sender: FDA-Public Use
  Company Number: FR-JNJFOC-20090800998

PATIENT
  Sex: Female

DRUGS (10)
  1. IXPRIM [Suspect]
     Route: 048
  2. IXPRIM [Suspect]
     Indication: DRUG USE FOR UNKNOWN INDICATION
     Route: 048
  3. LEXOMIL [Suspect]
     Route: 048
  4. LEXOMIL [Suspect]
     Indication: DRUG USE FOR UNKNOWN INDICATION
     Route: 048
  5. XANAX [Suspect]
     Indication: DRUG USE FOR UNKNOWN INDICATION
     Route: 048
  6. CREON [Concomitant]
     Route: 065
  7. DI-ANTALVIC [Concomitant]
     Route: 065
  8. STILNOX [Concomitant]
     Route: 065
  9. TERCIAN [Concomitant]
     Route: 065
  10. SPECIAFOLDINE [Concomitant]
     Route: 065

REACTIONS (3)
  - BRADYCARDIA [None]
  - HYPOTENSION [None]
  - SOMNOLENCE [None]
